FAERS Safety Report 13524818 (Version 1)
Quarter: 2017Q2

REPORT INFORMATION
  Report Type: Spontaneous
  Country: US (occurrence: US)
  Receive Date: 20170508
  Receipt Date: 20170508
  Transmission Date: 20170830
  Serious: No
  Sender: FDA-Public Use
  Company Number: US-ROCHE-1119262

PATIENT
  Sex: Male

DRUGS (3)
  1. INTERFERON NOS [Concomitant]
     Active Substance: INTERFERON
     Route: 065
     Dates: start: 200505
  2. AVASTIN [Suspect]
     Active Substance: BEVACIZUMAB
     Indication: RENAL CANCER
     Route: 065
     Dates: start: 200506
  3. TARCEVA [Suspect]
     Active Substance: ERLOTINIB HYDROCHLORIDE
     Indication: RENAL CANCER
     Route: 065
     Dates: start: 200506, end: 200511

REACTIONS (1)
  - Rash [Unknown]
